FAERS Safety Report 24610091 (Version 1)
Quarter: 2024Q4

REPORT INFORMATION
  Report Type: Other
  Country: US (occurrence: US)
  Receive Date: 20241112
  Receipt Date: 20241112
  Transmission Date: 20250115
  Serious: Yes (Other)
  Sender: B BRAUN
  Company Number: US-B.Braun Medical Inc.-2164921

PATIENT
  Age: 9 Day
  Sex: Female

DRUGS (1)
  1. HEPARIN SODIUM IN DEXTROSE [Suspect]
     Active Substance: HEPARIN SODIUM
     Indication: Thrombosis

REACTIONS (2)
  - Intraventricular haemorrhage neonatal [Unknown]
  - Drug effect less than expected [Unknown]
